FAERS Safety Report 13635340 (Version 2)
Quarter: 2018Q4

REPORT INFORMATION
  Report Type: Spontaneous
  Country: US (occurrence: US)
  Receive Date: 20170609
  Receipt Date: 20181217
  Transmission Date: 20190204
  Serious: No
  Sender: FDA-Public Use
  Company Number: US-PFIZER INC-2017250665

PATIENT
  Age: 68 Year
  Sex: Male

DRUGS (1)
  1. XELJANZ XR [Suspect]
     Active Substance: TOFACITINIB CITRATE
     Indication: RHEUMATOID ARTHRITIS
     Dosage: 11 MG, 1X/DAY
     Route: 048
     Dates: start: 201601

REACTIONS (2)
  - Accidental overdose [Unknown]
  - Vomiting [Unknown]
